FAERS Safety Report 21344328 (Version 9)
Quarter: 2022Q4

REPORT INFORMATION
  Report Type: Report from Study
  Country: TR (occurrence: None)
  Receive Date: 20220916
  Receipt Date: 20221005
  Transmission Date: 20230113
  Serious: Yes (Death)
  Sender: FDA-Public Use
  Company Number: TR-Eisai Medical Research-EC-2022-123408

PATIENT
  Age: 60 Year
  Sex: Female
  Weight: 40 kg

DRUGS (7)
  1. LENVATINIB [Suspect]
     Active Substance: LENVATINIB
     Indication: Clear cell renal cell carcinoma
     Route: 048
     Dates: start: 20220729, end: 20220907
  2. PEMBROLIZUMAB [Suspect]
     Active Substance: PEMBROLIZUMAB
     Indication: Clear cell renal cell carcinoma
     Route: 041
     Dates: start: 20220729, end: 20220729
  3. OKSAPAR [Concomitant]
     Route: 058
     Dates: start: 202201, end: 20220908
  4. ZOLEDRONIC ACID [Concomitant]
     Active Substance: ZOLEDRONIC ACID
     Route: 042
     Dates: start: 20220622
  5. FENTANYL [Concomitant]
     Active Substance: FENTANYL
     Dates: start: 20220730
  6. ERDOSTIN [Concomitant]
     Dates: start: 20220818
  7. DUPHALAC [Concomitant]
     Active Substance: LACTULOSE
     Dates: start: 20220818, end: 20220906

REACTIONS (1)
  - Death [Fatal]

NARRATIVE: CASE EVENT DATE: 20220909
